FAERS Safety Report 18950306 (Version 1)
Quarter: 2021Q1

REPORT INFORMATION
  Report Type: Spontaneous
  Country: US (occurrence: US)
  Receive Date: 20210228
  Receipt Date: 20210228
  Transmission Date: 20210420
  Serious: No
  Sender: FDA-Public Use
  Company Number: US-ROCHE-2718522

PATIENT
  Age: 93 Year
  Sex: Female
  Weight: 101.97 kg

DRUGS (17)
  1. XOLAIR [Suspect]
     Active Substance: OMALIZUMAB
     Indication: ASTHMA
     Dosage: ONGOING: YES
     Route: 065
     Dates: start: 20200522
  2. SYMBICORT [Suspect]
     Active Substance: BUDESONIDE\FORMOTEROL FUMARATE DIHYDRATE
     Indication: PRODUCT USED FOR UNKNOWN INDICATION
     Dosage: 160/4.5
     Route: 065
  3. INSULIN [Suspect]
     Active Substance: INSULIN NOS
     Indication: DIABETES MELLITUS
     Route: 065
  4. VITAMIN D3 [Concomitant]
     Active Substance: CHOLECALCIFEROL
     Dosage: ONGOING: YES
  5. ISOSORBIDE. [Concomitant]
     Active Substance: ISOSORBIDE
  6. ALBUTEROL. [Concomitant]
     Active Substance: ALBUTEROL
  7. PREDNISONE. [Suspect]
     Active Substance: PREDNISONE
     Route: 065
  8. VITAMIN B COMPLEX [Concomitant]
     Active Substance: CYANOCOBALAMIN\DEXPANTHENOL\NIACINAMIDE\PYRIDOXINE HYDROCHLORIDE\RIBOFLAVIN 5^-PHOSPHATE SODIUM\THIAMINE HYDROCHLORIDE\VITAMIN B COMPLEX
     Dosage: ONGOING: YES
  9. PREDNISONE. [Suspect]
     Active Substance: PREDNISONE
     Indication: PRODUCT USED FOR UNKNOWN INDICATION
     Route: 065
  10. PREDNISONE. [Suspect]
     Active Substance: PREDNISONE
     Route: 065
  11. TEKTURNA [Concomitant]
     Active Substance: ALISKIREN HEMIFUMARATE
  12. ASPIRIN. [Concomitant]
     Active Substance: ASPIRIN
  13. OMEGA 3 [Concomitant]
     Active Substance: OMEGA-3 FATTY ACIDS
     Dosage: ONGOING: YES
  14. HYDROCHLOROTHIAZIDE. [Concomitant]
     Active Substance: HYDROCHLOROTHIAZIDE
     Dosage: ONGOING: YES
  15. METOPROLOL. [Concomitant]
     Active Substance: METOPROLOL
     Dosage: ONGOING: YES
  16. DILTIAZEM. [Concomitant]
     Active Substance: DILTIAZEM
     Dosage: ONGOING: YES
  17. SPIRONOLACTONE. [Concomitant]
     Active Substance: SPIRONOLACTONE
     Dosage: ONGOING: YES

REACTIONS (8)
  - Wheezing [Not Recovered/Not Resolved]
  - Balance disorder [Not Recovered/Not Resolved]
  - Crying [Unknown]
  - Dyspnoea [Not Recovered/Not Resolved]
  - Gait disturbance [Not Recovered/Not Resolved]
  - Cough [Not Recovered/Not Resolved]
  - Feeling abnormal [Not Recovered/Not Resolved]
  - Weight increased [Unknown]
